FAERS Safety Report 7098063-0 (Version None)
Quarter: 2010Q4

REPORT INFORMATION
  Report Type: 
  Country: None (occurrence: None)
  Receive Date: 20101112
  Receipt Date: 20101103
  Transmission Date: 20110411
  Serious: Yes (Hospitalization)
  Sender: FDA-Public Use
  Company Number: US-US-EMD SERONO, INC.-7026001

PATIENT
  Sex: Female
  Weight: 107 kg

DRUGS (6)
  1. REBIF [Suspect]
     Indication: MULTIPLE SCLEROSIS
     Route: 058
     Dates: start: 20100930
  2. NITROGLYCERIN [Concomitant]
     Indication: CHEST PAIN
     Dates: start: 20100801
  3. METOPROLOL [Concomitant]
     Indication: HYPERTENSION
  4. DEPAKOTE [Concomitant]
     Indication: HEADACHE
  5. TRAMADOL HCL [Concomitant]
     Indication: PAIN
  6. PROZAC [Concomitant]
     Indication: DEPRESSION
     Dates: start: 20100501

REACTIONS (6)
  - ARTERIOSPASM CORONARY [None]
  - ARTHRALGIA [None]
  - CHEST PAIN [None]
  - DYSPNOEA [None]
  - JOINT SWELLING [None]
  - MYALGIA [None]
